FAERS Safety Report 6186066-X (Version None)
Quarter: 2009Q2

REPORT INFORMATION
  Report Type: 
  Country: None (occurrence: None)
  Receive Date: 20090507
  Receipt Date: 20090507
  Transmission Date: 20091009
  Serious: Yes (Other)
  Sender: FDA-Public Use
  Company Number: None

PATIENT
  Age: 78 Year
  Sex: Male
  Weight: 86.1834 kg

DRUGS (1)
  1. ISOSORBIDE MONONITRATE [Suspect]
     Dosage: TAKE 1 TABLET DAILY

REACTIONS (4)
  - BLOOD PRESSURE INCREASED [None]
  - HEADACHE [None]
  - HOT FLUSH [None]
  - NERVOUSNESS [None]
